FAERS Safety Report 11216291 (Version 2)
Quarter: 2017Q1

REPORT INFORMATION
  Report Type: Spontaneous
  Country: US (occurrence: US)
  Receive Date: 20150624
  Receipt Date: 20170324
  Transmission Date: 20170428
  Serious: Yes (Hospitalization, Other)
  Sender: FDA-Public Use
  Company Number: US-ELI_LILLY_AND_COMPANY-US201506006847

PATIENT
  Age: 43 Year
  Sex: Female

DRUGS (6)
  1. BUSPAR [Concomitant]
     Active Substance: BUSPIRONE HYDROCHLORIDE
     Indication: PRODUCT USED FOR UNKNOWN INDICATION
     Dosage: UNK, UNKNOWN
     Route: 065
  2. CYMBALTA [Suspect]
     Active Substance: DULOXETINE HYDROCHLORIDE
     Dosage: 90 MG, QD
     Route: 048
     Dates: start: 201302
  3. ATIVAN [Concomitant]
     Active Substance: LORAZEPAM
     Indication: PRODUCT USED FOR UNKNOWN INDICATION
     Dosage: UNK, UNKNOWN
     Route: 065
  4. CYMBALTA [Suspect]
     Active Substance: DULOXETINE HYDROCHLORIDE
     Dosage: 60 MG, QD
     Route: 048
     Dates: start: 201105
  5. TOPAMAX [Concomitant]
     Active Substance: TOPIRAMATE
     Indication: PRODUCT USED FOR UNKNOWN INDICATION
     Dosage: UNK, UNKNOWN
     Route: 065
  6. CYMBALTA [Suspect]
     Active Substance: DULOXETINE HYDROCHLORIDE
     Indication: DEPRESSION
     Dosage: UNK UNK, UNKNOWN
     Route: 048
     Dates: start: 200710, end: 201307

REACTIONS (26)
  - Dysphoria [Unknown]
  - Tremor [Unknown]
  - Vomiting [Unknown]
  - Anxiety [Unknown]
  - Lethargy [Unknown]
  - Insomnia [Unknown]
  - Drug withdrawal syndrome [Unknown]
  - Speech disorder [Unknown]
  - Back pain [Unknown]
  - Suicidal ideation [Unknown]
  - Affect lability [Unknown]
  - Suicide attempt [Unknown]
  - Agitation [Unknown]
  - Hypoaesthesia [Unknown]
  - Paraesthesia [Unknown]
  - Fatigue [Unknown]
  - Drug dose omission [Unknown]
  - Gait disturbance [Unknown]
  - Muscular weakness [Unknown]
  - Abdominal pain [Unknown]
  - Headache [Unknown]
  - Irritability [Unknown]
  - Diarrhoea [Unknown]
  - Amnesia [Unknown]
  - Nausea [Unknown]
  - Seizure [Unknown]

NARRATIVE: CASE EVENT DATE: 20120104
